FAERS Safety Report 22641781 (Version 1)
Quarter: 2023Q2

REPORT INFORMATION
  Report Type: Spontaneous
  Country: PT (occurrence: PT)
  Receive Date: 20230626
  Receipt Date: 20230626
  Transmission Date: 20230722
  Serious: Yes (Hospitalization, Other)
  Sender: FDA-Public Use
  Company Number: PT-FreseniusKabi-FK202307797

PATIENT
  Age: 67 Year
  Sex: Male

DRUGS (1)
  1. ADALIMUMAB [Suspect]
     Active Substance: ADALIMUMAB
     Indication: Crohn^s disease
     Dosage: UNK (THERAPY FOR 5 MONTHS)
     Route: 058

REACTIONS (4)
  - Disseminated tuberculosis [Recovered/Resolved]
  - Infection [Recovering/Resolving]
  - Autoimmune disorder [Unknown]
  - Neoplasm [Unknown]
